FAERS Safety Report 5778730-9 (Version None)
Quarter: 2008Q2

REPORT INFORMATION
  Report Type: 
  Country: None (occurrence: None)
  Receive Date: 20080618
  Receipt Date: 20080618
  Transmission Date: 20081010
  Serious: Yes (Hospitalization)
  Sender: FDA-Public Use
  Company Number: None

PATIENT
  Age: 62 Year
  Sex: Male
  Weight: 86 kg

DRUGS (13)
  1. GABAPENTIN [Suspect]
     Indication: CONVULSION
     Dosage: 600 MG BID PO PRIOR TO ADMISSIO
     Route: 048
  2. ALLOPURINOL [Concomitant]
  3. AMIODARONE HCL [Concomitant]
  4. LEVOTHYROXINE SODIUM [Concomitant]
  5. MIDODRINE [Concomitant]
  6. OMEPRAZOLE [Concomitant]
  7. OXCARBAZEPINE [Concomitant]
  8. POLETHYLENE GLYCOL [Concomitant]
  9. WARFARIN SODIUM [Concomitant]
  10. AZITHROMYCIN [Concomitant]
  11. CEFEPIME [Concomitant]
  12. LEVOFLOXACIN [Concomitant]
  13. VANCOMYCIN [Concomitant]

REACTIONS (6)
  - ANAEMIA [None]
  - ASTHENIA [None]
  - DIZZINESS [None]
  - DRY GANGRENE [None]
  - MENTAL STATUS CHANGES [None]
  - TREMOR [None]
